FAERS Safety Report 18507208 (Version 2)
Quarter: 2020Q4

REPORT INFORMATION
  Report Type: Other
  Country: JP (occurrence: JP)
  Receive Date: 20201116
  Receipt Date: 20201123
  Transmission Date: 20210114
  Serious: Yes (Death, Other)
  Sender: FDA-Public Use
  Company Number: JP-ROCHE-2715119

PATIENT
  Age: 69 Year
  Sex: Male

DRUGS (2)
  1. CELLCEPT [Suspect]
     Active Substance: MYCOPHENOLATE MOFETIL\MYCOPHENOLATE MOFETIL HYDROCHLORIDE
     Indication: GLOMERULONEPHRITIS
     Route: 048
  2. PREDNISOLONE. [Concomitant]
     Active Substance: PREDNISOLONE
     Indication: URTICARIAL VASCULITIS

REACTIONS (4)
  - Acute myocardial infarction [Fatal]
  - Renal failure [Unknown]
  - Off label use [Unknown]
  - Intentional product use issue [Unknown]
